FAERS Safety Report 5245974-4 (Version None)
Quarter: 2007Q1

REPORT INFORMATION
  Report Type: 
  Country: None (occurrence: None)
  Receive Date: 20070220
  Receipt Date: 20070207
  Transmission Date: 20070707
  Serious: Yes (Hospitalization, Disabling)
  Sender: FDA-Public Use
  Company Number: 2007-154243-NL

PATIENT
  Age: 77 Year
  Sex: Female

DRUGS (2)
  1. MIRTAZAPINE [Suspect]
     Indication: DEPRESSION
     Dosage: 30 MG QD; ORAL
     Route: 048
     Dates: start: 20061027, end: 20061210
  2. ANEUROL [Concomitant]

REACTIONS (1)
  - RETINAL VEIN THROMBOSIS [None]
